FAERS Safety Report 10873296 (Version 1)
Quarter: 2015Q1

REPORT INFORMATION
  Report Type: Spontaneous
  Country: GB (occurrence: GB)
  Receive Date: 20150227
  Receipt Date: 20150227
  Transmission Date: 20150721
  Serious: Yes (Disabling, Other)
  Sender: FDA-Public Use
  Company Number: GB-RANBAXY-2015RR-93268

PATIENT

DRUGS (1)
  1. CEFALEXIN [Suspect]
     Active Substance: CEPHALEXIN
     Indication: URINARY TRACT INFECTION
     Dosage: UNK
     Route: 048
     Dates: start: 20140925, end: 20141101

REACTIONS (2)
  - Inflammation [Unknown]
  - Urticaria chronic [Recovered/Resolved with Sequelae]

NARRATIVE: CASE EVENT DATE: 20140925
